FAERS Safety Report 23437818 (Version 1)
Quarter: 2024Q1

REPORT INFORMATION
  Report Type: Report from Study
  Country: US (occurrence: US)
  Receive Date: 20240124
  Receipt Date: 20240124
  Transmission Date: 20240410
  Serious: Yes (Death)
  Sender: FDA-Public Use
  Company Number: US-BAYER-2024A013881

PATIENT
  Age: 43 Year
  Sex: Female
  Weight: 114.74 kg

DRUGS (12)
  1. ADEMPAS [Suspect]
     Active Substance: RIOCIGUAT
     Indication: Pulmonary arterial hypertension
     Dosage: UNK
     Dates: start: 20230629
  2. ADEMPAS [Suspect]
     Active Substance: RIOCIGUAT
     Indication: Pulmonary arterial hypertension
     Dosage: 2.5 MG, TID
     Route: 048
  3. POTASSIUM CHLORIDE [Concomitant]
     Active Substance: POTASSIUM CHLORIDE
  4. GASPAN [PANTOPRAZOLE SODIUM SESQUIHYDRATE] [Concomitant]
  5. METOCLOPRAMIDE [Concomitant]
     Active Substance: METOCLOPRAMIDE
  6. LOPERAMIDE [Concomitant]
     Active Substance: LOPERAMIDE
  7. REMODULIN [Concomitant]
     Active Substance: TREPROSTINIL
  8. CALCIUM CARBONATE [Concomitant]
     Active Substance: CALCIUM CARBONATE
  9. ACETAMINOPHEN [Concomitant]
     Active Substance: ACETAMINOPHEN
  10. GABAPENTIN [Concomitant]
     Active Substance: GABAPENTIN
  11. DIGOXIN [Concomitant]
     Active Substance: DIGOXIN
  12. TORSEMIDE [Concomitant]
     Active Substance: TORSEMIDE

REACTIONS (1)
  - Death [Fatal]

NARRATIVE: CASE EVENT DATE: 20240121
